FAERS Safety Report 4334988-4 (Version None)
Quarter: 2004Q2

REPORT INFORMATION
  Report Type: 
  Country: None (occurrence: None)
  Receive Date: 20040408
  Receipt Date: 20040325
  Transmission Date: 20050107
  Serious: Yes (Hospitalization)
  Sender: FDA-Public Use
  Company Number: ES-ROCHE-362668

PATIENT
  Age: 50 Year
  Sex: Male

DRUGS (15)
  1. SAQUINAVIR [Suspect]
     Indication: HIV INFECTION
     Route: 065
  2. ZALCITABINE [Suspect]
     Indication: HIV INFECTION
     Route: 065
  3. ZIDOVUDINE [Suspect]
     Indication: HIV INFECTION
     Route: 065
  4. NELFINAVIR [Suspect]
     Indication: HIV INFECTION
     Route: 065
  5. DIDANOSINE [Suspect]
     Indication: HIV INFECTION
     Route: 065
  6. DIDANOSINE [Suspect]
     Route: 065
  7. STAVUDINE [Suspect]
     Indication: HIV INFECTION
     Route: 065
  8. STAVUDINE [Suspect]
     Route: 065
  9. LAMIVUDINE [Suspect]
     Indication: HIV INFECTION
     Route: 065
  10. RITONAVIR [Suspect]
     Indication: HIV INFECTION
     Route: 065
  11. RITONAVIR [Suspect]
     Route: 065
  12. NEVIRAPINE [Suspect]
     Indication: HIV INFECTION
     Route: 065
  13. INDINAVIR [Suspect]
     Indication: HIV INFECTION
     Route: 065
  14. ALLOPURINOL [Concomitant]
  15. GEMFIBROZIL [Concomitant]
     Indication: HIV INFECTION
     Route: 065

REACTIONS (1)
  - HYPERLACTACIDAEMIA [None]
